FAERS Safety Report 18504955 (Version 1)
Quarter: 2020Q4

REPORT INFORMATION
  Report Type: Spontaneous
  Country: DK (occurrence: DK)
  Receive Date: 20201115
  Receipt Date: 20201115
  Transmission Date: 20210114
  Serious: Yes (Death, Life-Threatening, Other)
  Sender: FDA-Public Use
  Company Number: DK-BRISTOL-MYERS SQUIBB COMPANY-BMS-2020-094868

PATIENT
  Age: 74 Year
  Sex: Male
  Weight: 69 kg

DRUGS (15)
  1. OPDIVO [Suspect]
     Active Substance: NIVOLUMAB
     Indication: METASTATIC NEOPLASM
     Dosage: 200 MILLIGRAM
     Route: 042
     Dates: start: 20200826, end: 20201007
  2. PARACETAMOL ^ORIFARM^ [Concomitant]
     Indication: PAIN
     Dosage: 500 MILLIGRAM
     Route: 048
     Dates: start: 20201014
  3. MORFIN ^SAD^ [Concomitant]
     Active Substance: MORPHINE HYDROCHLORIDE
     Indication: PAIN
     Dosage: UNK
     Route: 065
     Dates: start: 20201014
  4. YERVOY [Suspect]
     Active Substance: IPILIMUMAB
     Indication: METASTATIC NEOPLASM
     Dosage: 69 MILLIGRAM
     Route: 042
     Dates: start: 20200826, end: 20201007
  5. CONTALGIN [Concomitant]
     Active Substance: MORPHINE SULFATE
     Indication: PAIN
     Dosage: 10 MILLIGRAM, QD
     Route: 048
     Dates: start: 20201013
  6. MAGNESIA ^DAK^ [Concomitant]
     Indication: CONSTIPATION
     Dosage: 1000 MILLIGRAM, PRN
     Route: 048
     Dates: start: 20201014
  7. CALCIUM OG D-VITAMIN [Concomitant]
     Indication: MINERAL SUPPLEMENTATION
     Dosage: 2 AGU/ML, QD
     Route: 048
     Dates: start: 20200826
  8. SERTRALIN ^ACCORD^ [Concomitant]
     Indication: ANXIETY
     Dosage: 50 MILLIGRAM, QD
     Route: 048
     Dates: start: 20180822
  9. ANORO [Concomitant]
     Active Substance: UMECLIDINIUM BROMIDE\VILANTEROL TRIFENATATE
     Indication: CHRONIC OBSTRUCTIVE PULMONARY DISEASE
     Dosage: 1 AGU/ML, QD
     Route: 055
     Dates: start: 20180523
  10. PANTOPRAZOLE ^TEVA^ [Concomitant]
     Active Substance: PANTOPRAZOLE SODIUM
     Indication: GASTROOESOPHAGEAL REFLUX DISEASE
     Dosage: 40 MILLIGRAM, QD
     Route: 048
     Dates: start: 20200826
  11. BUSCOPAN [Concomitant]
     Active Substance: BUTYLSCOPOLAMINE BROMIDE
     Indication: PRODUCTIVE COUGH
     Dosage: 30 MILLIGRAM, QD
     Route: 048
     Dates: start: 20201013
  12. METOCLOPRAMIDE ^ACCORD^ [Concomitant]
     Active Substance: METOCLOPRAMIDE HYDROCHLORIDE
     Indication: NAUSEA
     Dosage: 10 MILLIGRAM
     Route: 048
     Dates: start: 20200901
  13. GANGIDEN [Concomitant]
     Indication: CONSTIPATION
     Dosage: UNK
     Route: 048
     Dates: start: 20201014
  14. MIDAZOLAM ^HAMELN^ [Concomitant]
     Active Substance: MIDAZOLAM HYDROCHLORIDE
     Indication: PRODUCT USED FOR UNKNOWN INDICATION
     Dosage: UNK
     Route: 065
     Dates: start: 20201017
  15. ATARAX [Concomitant]
     Active Substance: HYDROXYZINE HYDROCHLORIDE
     Indication: PRURITUS
     Dosage: 25 MILLIGRAM, PRN
     Route: 048
     Dates: start: 20201014

REACTIONS (4)
  - Mononeuropathy multiplex [Fatal]
  - Stevens-Johnson syndrome [Fatal]
  - Prescribed underdose [Unknown]
  - Acute kidney injury [Fatal]

NARRATIVE: CASE EVENT DATE: 20201014
